FAERS Safety Report 24203072 (Version 1)
Quarter: 2024Q3

REPORT INFORMATION
  Report Type: Report from Study
  Country: US (occurrence: US)
  Receive Date: 20240813
  Receipt Date: 20240813
  Transmission Date: 20241016
  Serious: No
  Sender: ACADIA PHARMACEUTICALS
  Company Number: US-ACADIA PHARMACEUTICALS INC.-ACA-2024-PIM-002089

PATIENT
  Sex: Female

DRUGS (16)
  1. NUPLAZID [Suspect]
     Active Substance: PIMAVANSERIN TARTRATE
     Indication: Parkinson^s disease
     Dosage: 34 MILLIGRAM, QD
     Route: 048
     Dates: start: 20221101
  2. NUPLAZID [Suspect]
     Active Substance: PIMAVANSERIN TARTRATE
     Dosage: 34 MILLIGRAM, QD
     Route: 048
  3. ASCORBIC ACID [ASCORBIC ACID;GLUCOSE] [Concomitant]
     Dosage: 1000 MILLIGRAM
  4. VITAMIN B12 [Concomitant]
     Active Substance: CYANOCOBALAMIN
     Dosage: 1000 MICROGRAM
  5. CALTRATE WITH VITAMIN D [Concomitant]
     Active Substance: CALCIUM CARBONATE\CHOLECALCIFEROL
     Dosage: 600-800
  6. CARBIDOPA\LEVODOPA [Concomitant]
     Active Substance: CARBIDOPA\LEVODOPA
     Dosage: 25-100MG
  7. GOCOVRI [Concomitant]
     Active Substance: AMANTADINE
     Dosage: 137 MILLIGRAM
  8. GOCOVRI [Concomitant]
     Active Substance: AMANTADINE
     Dosage: 68.5 MILLIGRAM
  9. MIDODRINE [Concomitant]
     Active Substance: MIDODRINE
     Dosage: 5 MILLIGRAM
  10. NOURIANZ [Concomitant]
     Active Substance: ISTRADEFYLLINE
     Dosage: 40 MILLIGRAM
  11. PRAMIPEXOLE [Concomitant]
     Active Substance: PRAMIPEXOLE\PRAMIPEXOLE DIHYDROCHLORIDE
     Dosage: 2.25
  12. RYTARY [Concomitant]
     Active Substance: CARBIDOPA\LEVODOPA
     Dosage: 145 MILLIGRAM
  13. RYTARY [Concomitant]
     Active Substance: CARBIDOPA\LEVODOPA
     Dosage: 195 MILLIGRAM
  14. VITAMIN D3 [Concomitant]
     Active Substance: CHOLECALCIFEROL
     Dosage: 1000 UNITS
  15. XADAGO [Concomitant]
     Active Substance: SAFINAMIDE MESYLATE
     Dosage: 100 MILLIGRAM
  16. XADAGO [Concomitant]
     Active Substance: SAFINAMIDE MESYLATE
     Dosage: 50 MILLIGRAM

REACTIONS (2)
  - Product dose omission issue [Unknown]
  - Product dose omission issue [Unknown]
